FAERS Safety Report 12438525 (Version 1)
Quarter: 2016Q2

REPORT INFORMATION
  Report Type: Spontaneous
  Country: US (occurrence: US)
  Receive Date: 20160606
  Receipt Date: 20160606
  Transmission Date: 20160815
  Serious: No
  Sender: FDA-Public Use
  Company Number: US-GLAXOSMITHKLINE-US2016079358

PATIENT
  Age: 62 Year
  Sex: Male

DRUGS (2)
  1. ALLI [Suspect]
     Active Substance: ORLISTAT
     Indication: WEIGHT LOSS DIET
     Dosage: UNK
     Dates: start: 1996
  2. ALLI [Suspect]
     Active Substance: ORLISTAT
     Dosage: UNK
     Dates: start: 201605

REACTIONS (5)
  - Frequent bowel movements [Not Recovered/Not Resolved]
  - Faeces pale [Unknown]
  - Extra dose administered [Unknown]
  - Drug ineffective [Unknown]
  - Steatorrhoea [Unknown]

NARRATIVE: CASE EVENT DATE: 201605
